FAERS Safety Report 13695170 (Version 1)
Quarter: 2017Q2

REPORT INFORMATION
  Report Type: Spontaneous
  Country: US (occurrence: US)
  Receive Date: 20170627
  Receipt Date: 20170627
  Transmission Date: 20170830
  Serious: Yes (Life-Threatening, Hospitalization)
  Sender: FDA-Public Use
  Company Number: PHHY2017US093695

PATIENT
  Age: 51 Year
  Sex: Female

DRUGS (2)
  1. ZOLEDRONATE [Suspect]
     Active Substance: ZOLEDRONIC ACID
     Indication: HYPERCALCAEMIA OF MALIGNANCY
     Dosage: 3.3 MG, ONCE/SINGLE
     Route: 042
  2. CALCITONIN [Concomitant]
     Active Substance: CALCITONIN
     Indication: HYPERCALCAEMIA OF MALIGNANCY
     Dosage: UNK
     Route: 065

REACTIONS (6)
  - Paraesthesia [Unknown]
  - Tetany [Unknown]
  - Hypoaesthesia [Unknown]
  - Hypocalcaemia [Recovered/Resolved]
  - Hyperparathyroidism secondary [Unknown]
  - Diarrhoea [Unknown]
